FAERS Safety Report 5123146-1 (Version None)
Quarter: 2006Q4

REPORT INFORMATION
  Report Type: 
  Country: None (occurrence: None)
  Receive Date: 20061009
  Receipt Date: 20061005
  Transmission Date: 20070319
  Serious: Yes (Disabling)
  Sender: FDA-Public Use
  Company Number: FR-MERCK-0610FRA00013

PATIENT
  Age: 14 Year
  Sex: Male

DRUGS (4)
  1. SINGULAIR [Suspect]
     Indication: ASTHMA
     Route: 048
  2. CLOMIPRAMINE HYDROCHLORIDE [Suspect]
     Route: 048
     Dates: start: 20060601
  3. DESLORATADINE [Suspect]
     Indication: ASTHMA
     Route: 048
  4. BUDESONIDE AND FORMOTEROL FUMARATE [Suspect]
     Indication: ASTHMA
     Route: 055

REACTIONS (1)
  - SYSTEMIC LUPUS ERYTHEMATOSUS [None]
